FAERS Safety Report 4855497-X (Version None)
Quarter: 2005Q4

REPORT INFORMATION
  Report Type: 
  Country: None (occurrence: None)
  Receive Date: 20051214
  Receipt Date: 20051201
  Transmission Date: 20060501
  Serious: Yes (Hospitalization)
  Sender: FDA-Public Use
  Company Number: 2005150197

PATIENT
  Age: 60 Year
  Sex: Male
  Weight: 90.7 kg

DRUGS (12)
  1. AZITHROMYCIN [Suspect]
     Indication: ILL-DEFINED DISORDER
  2. HEPARIN [Suspect]
     Indication: CORONARY ARTERY DISEASE
     Dosage: 2 IU/KG/HR, INTRAVENOUS
     Route: 042
     Dates: start: 20050215, end: 20050215
  3. GLUCOTROL [Concomitant]
  4. METFORMIN HCL [Concomitant]
  5. SOTALOL HCL [Concomitant]
  6. NORVASC [Concomitant]
  7. LIPITOR [Concomitant]
  8. PREVACID [Concomitant]
  9. ISMO [Concomitant]
  10. ZESTRIL [Concomitant]
  11. ASPIRIN [Concomitant]
  12. PLAVIX [Concomitant]

REACTIONS (3)
  - BRAIN NATRIURETIC PEPTIDE INCREASED [None]
  - CARDIAC FAILURE CONGESTIVE [None]
  - HALLUCINATION, VISUAL [None]
